FAERS Safety Report 4345305-8 (Version None)
Quarter: 2004Q2

REPORT INFORMATION
  Report Type: 
  Country: None (occurrence: None)
  Receive Date: 20040423
  Receipt Date: 20040218
  Transmission Date: 20050107
  Serious: Yes (Hospitalization)
  Sender: FDA-Public Use
  Company Number: AU-GLAXOSMITHKLINE-B0323707A

PATIENT
  Age: 64 Year
  Sex: Female

DRUGS (13)
  1. AVANDIA [Suspect]
     Indication: DIABETES MELLITUS INSULIN-DEPENDENT
     Route: 048
     Dates: start: 20031212, end: 20040103
  2. INSULIN INJECTION (NAME UNKNOWN) [Concomitant]
     Indication: DIABETES MELLITUS INSULIN-DEPENDENT
  3. AMOXIL [Concomitant]
     Dosage: 4MG PER DAY
     Route: 048
  4. FUROSEMIDE [Concomitant]
     Route: 048
  5. BACLOFEN [Concomitant]
     Dosage: 30U PER DAY
     Route: 048
  6. PREPULSID [Concomitant]
     Dosage: 5MG THREE TIMES PER DAY
     Route: 048
  7. MS CONTIN [Concomitant]
     Dosage: 30MG THREE TIMES PER DAY
     Route: 048
  8. QUININE [Concomitant]
     Dosage: 300MG AT NIGHT
     Route: 048
  9. ACETAMINOPHEN W/ CODEINE [Concomitant]
     Dosage: 6U PER DAY
     Route: 048
  10. CALCIUM [Concomitant]
     Dosage: 500MG PER DAY
     Route: 048
  11. KALMA [Concomitant]
     Indication: PANIC ATTACK
     Dosage: 2MG PER DAY
  12. SERETIDE [Concomitant]
  13. NILSTAT [Concomitant]
     Indication: ORAL CANDIDIASIS
     Route: 048

REACTIONS (6)
  - AGGRESSION [None]
  - DELUSION [None]
  - HYPOMANIA [None]
  - INSOMNIA [None]
  - MENTAL STATUS CHANGES [None]
  - TREATMENT NONCOMPLIANCE [None]
